FAERS Safety Report 8209312-7 (Version None)
Quarter: 2012Q1

REPORT INFORMATION
  Report Type: 
  Country: None (occurrence: None)
  Receive Date: 20120314
  Receipt Date: 20120306
  Transmission Date: 20120608
  Serious: Yes (Hospitalization, Other)
  Sender: FDA-Public Use
  Company Number: US-BAYER-201033876NA

PATIENT
  Age: 24 Year
  Sex: Female
  Weight: 52 kg

DRUGS (7)
  1. FISH OIL [Concomitant]
     Dosage: UNK UNK, QD
     Route: 048
  2. MULTI-VITAMIN [Concomitant]
     Dosage: UNK UNK, QD
     Route: 048
  3. PENICILLIN [Concomitant]
  4. AMOXICILLIN [Concomitant]
  5. CALCIUM [Concomitant]
     Dosage: 600 MG, QD
     Route: 048
  6. IBUPROFEN [Concomitant]
  7. YAZ [Suspect]
     Indication: ACNE
     Dosage: UNK UNK, UNK
     Route: 048
     Dates: start: 20090601, end: 20090901

REACTIONS (1)
  - PULMONARY EMBOLISM [None]
